FAERS Safety Report 8365593-0 (Version None)
Quarter: 2012Q2

REPORT INFORMATION
  Report Type: 
  Country: None (occurrence: None)
  Receive Date: 20120516
  Receipt Date: 20120510
  Transmission Date: 20120825
  Serious: Yes (Hospitalization, Disabling, Other)
  Sender: FDA-Public Use
  Company Number: US-MERCK-1203USA03308

PATIENT
  Age: 68 Year
  Sex: Female

DRUGS (4)
  1. CALCIUM (UNSPECIFIED) [Concomitant]
     Route: 048
  2. FOSAMAX PLUS D [Suspect]
     Route: 048
  3. FOSAMAX [Suspect]
     Indication: OSTEOPOROSIS
     Route: 048
     Dates: start: 19970101, end: 20070101
  4. FOSAMAX [Suspect]
     Indication: OSTEOPENIA
     Route: 048
     Dates: start: 19970101, end: 20070101

REACTIONS (12)
  - CLOSTRIDIAL INFECTION [None]
  - STAPHYLOCOCCAL INFECTION [None]
  - BONE DENSITY DECREASED [None]
  - MULTIPLE FRACTURES [None]
  - WEIGHT INCREASED [None]
  - THYROID DISORDER [None]
  - FEMUR FRACTURE [None]
  - OSTEOPOROSIS [None]
  - TOOTH DISORDER [None]
  - ARTHRITIS [None]
  - SQUAMOUS CELL CARCINOMA [None]
  - ANAEMIA [None]
